FAERS Safety Report 6284786-X (Version None)
Quarter: 2009Q3

REPORT INFORMATION
  Report Type: 
  Country: None (occurrence: None)
  Receive Date: 20090727
  Receipt Date: 20090722
  Transmission Date: 20100115
  Serious: Yes (Death, Other)
  Sender: FDA-Public Use
  Company Number: PHHY2009BR30185

PATIENT
  Sex: Female

DRUGS (2)
  1. EXFORGE [Suspect]
     Dosage: 160/5 MG
  2. OLCADIL [Suspect]

REACTIONS (7)
  - ARRHYTHMIA [None]
  - CARDIOMEGALY [None]
  - CATARACT [None]
  - FEELING ABNORMAL [None]
  - HYPERTENSION [None]
  - HYPERTENSIVE CARDIOMYOPATHY [None]
  - PULMONARY OEDEMA [None]
